FAERS Safety Report 9774465 (Version 2)
Quarter: 2014Q1

REPORT INFORMATION
  Report Type: Spontaneous
  Country: FR (occurrence: FR)
  Receive Date: 20131220
  Receipt Date: 20140328
  Transmission Date: 20141002
  Serious: Yes (Other)
  Sender: FDA-Public Use
  Company Number: FR-VERTEX PHARMACEUTICALS INC-2013-011929

PATIENT
  Sex: 0

DRUGS (6)
  1. INCIVO [Suspect]
     Indication: HEPATITIS C
     Route: 065
  2. RIBAVIRIN [Suspect]
     Indication: HEPATITIS C
     Dosage: UNK
     Route: 065
  3. PEG-INTERFERON [Suspect]
     Indication: HEPATITIS C
     Dosage: UNK
     Route: 065
  4. TACROLIMUS [Suspect]
     Indication: IMMUNOSUPPRESSION
     Route: 065
  5. MYCOPHENOLATE MOFETIL [Suspect]
     Indication: IMMUNOSUPPRESSION
     Dosage: UNK
     Route: 065
  6. CYCLOSPORINE [Suspect]
     Indication: IMMUNOSUPPRESSION
     Dosage: UNK
     Route: 065

REACTIONS (4)
  - Ophthalmic herpes simplex [Unknown]
  - Anaemia [Unknown]
  - Off label use [Unknown]
  - Treatment failure [Unknown]
